FAERS Safety Report 12241206 (Version 1)
Quarter: 2016Q2

REPORT INFORMATION
  Report Type: Spontaneous
  Country: GB (occurrence: None)
  Receive Date: 20160405
  Receipt Date: 20160405
  Transmission Date: 20160815
  Serious: Yes (Disabling)
  Sender: FDA-Public Use
  Company Number: None

PATIENT
  Age: 17 Year
  Sex: Female
  Weight: 65 kg

DRUGS (3)
  1. ROACCUTANE [Suspect]
     Active Substance: ISOTRETINOIN
     Indication: ACNE
     Dates: start: 20130210, end: 20130702
  2. SKINAIDE [Concomitant]
  3. MILLINETTE [Concomitant]

REACTIONS (2)
  - Back pain [None]
  - Activities of daily living impaired [None]

NARRATIVE: CASE EVENT DATE: 20130213
